FAERS Safety Report 14295646 (Version 1)
Quarter: 2017Q4

REPORT INFORMATION
  Report Type: Spontaneous
  Country: US (occurrence: US)
  Receive Date: 20171215
  Receipt Date: 20171215
  Transmission Date: 20180321
  Serious: No
  Sender: FDA-Public Use
  Company Number: None

PATIENT
  Age: 27 Year
  Sex: Female

DRUGS (1)
  1. REMICADE [Suspect]
     Active Substance: INFLIXIMAB
     Indication: ENTERITIS
     Dosage: 289MG EVERY 8 WEEKS IV INFUSION
     Route: 042
     Dates: start: 20170117, end: 20171127

REACTIONS (3)
  - Rash generalised [None]
  - Drug hypersensitivity [None]
  - Pruritus generalised [None]

NARRATIVE: CASE EVENT DATE: 20171129
